FAERS Safety Report 7217408-1 (Version None)
Quarter: 2011Q1

REPORT INFORMATION
  Report Type: 
  Country: None (occurrence: None)
  Receive Date: 20110110
  Receipt Date: 20101229
  Transmission Date: 20110831
  Serious: Yes (Other)
  Sender: FDA-Public Use
  Company Number: PHHY2010GR89230

PATIENT
  Age: 55 Year
  Sex: Female

DRUGS (3)
  1. THYROHORMONE [Concomitant]
  2. FEMARA [Concomitant]
  3. DIOVAN [Suspect]
     Indication: HYPERTENSION
     Dosage: 80 MG
     Dates: start: 20090901

REACTIONS (2)
  - LYMPHOMA [None]
  - LYMPHADENOPATHY [None]
